FAERS Safety Report 12311736 (Version 1)
Quarter: 2016Q2

REPORT INFORMATION
  Report Type: Spontaneous
  Country: CN (occurrence: CN)
  Receive Date: 20160427
  Receipt Date: 20160427
  Transmission Date: 20160815
  Serious: Yes (Other)
  Sender: FDA-Public Use
  Company Number: CN-ELI_LILLY_AND_COMPANY-CN201604007005

PATIENT
  Age: 54 Year
  Sex: Female
  Weight: 65 kg

DRUGS (1)
  1. HUMALOG MIX75/25 [Suspect]
     Active Substance: INSULIN LISPRO
     Indication: DIABETES MELLITUS
     Dosage: 6 U, BID
     Route: 058
     Dates: start: 2014, end: 201601

REACTIONS (6)
  - Presbyopia [Unknown]
  - Blood potassium decreased [Unknown]
  - Pneumonia [Unknown]
  - Blood glucose increased [Unknown]
  - Drug dose omission [Unknown]
  - Renal disorder [Unknown]

NARRATIVE: CASE EVENT DATE: 201601
